FAERS Safety Report 25177167 (Version 1)
Quarter: 2025Q2

REPORT INFORMATION
  Report Type: Other
  Country: CN (occurrence: CN)
  Receive Date: 20250409
  Receipt Date: 20250409
  Transmission Date: 20250717
  Serious: Yes (Death, Hospitalization, Other)
  Sender: ANI
  Company Number: CN-ANIPHARMA-022286

PATIENT
  Age: 19 Year
  Sex: Male

DRUGS (14)
  1. CYCLOPHOSPHAMIDE [Suspect]
     Active Substance: CYCLOPHOSPHAMIDE
     Indication: T-cell type acute leukaemia
  2. IDARUBICIN [Concomitant]
     Active Substance: IDARUBICIN
     Indication: T-cell type acute leukaemia
  3. PEGASPARGASE [Concomitant]
     Active Substance: PEGASPARGASE
     Indication: T-cell type acute leukaemia
  4. VINDESINE [Concomitant]
     Active Substance: VINDESINE
     Indication: T-cell type acute leukaemia
  5. DEXAMETHASONE [Concomitant]
     Active Substance: DEXAMETHASONE
     Indication: T-cell type acute leukaemia
  6. METHOTREXATE [Concomitant]
     Active Substance: METHOTREXATE
     Indication: T-cell type acute leukaemia
     Route: 037
  7. CYTARABINE [Concomitant]
     Active Substance: CYTARABINE
     Indication: T-cell type acute leukaemia
     Route: 037
  8. SODIUM CHLORIDE [Concomitant]
     Active Substance: SODIUM CHLORIDE
     Indication: T-cell type acute leukaemia
  9. MERCAPTOPURINE [Concomitant]
     Active Substance: MERCAPTOPURINE
     Indication: T-cell type acute leukaemia
  10. DEXAMETHASONE [Concomitant]
     Active Substance: DEXAMETHASONE
     Indication: T-cell type acute leukaemia
  11. CYCLOPHOSPHAMIDE [Suspect]
     Active Substance: CYCLOPHOSPHAMIDE
     Indication: T-cell type acute leukaemia
  12. CYCLOPHOSPHAMIDE [Suspect]
     Active Substance: CYCLOPHOSPHAMIDE
     Indication: T-cell type acute leukaemia
  13. CYTARABINE [Concomitant]
     Active Substance: CYTARABINE
     Indication: T-cell type acute leukaemia
  14. DEXAMETHASONE [Concomitant]
     Active Substance: DEXAMETHASONE
     Indication: T-cell type acute leukaemia
     Route: 037

REACTIONS (4)
  - Drug ineffective [Fatal]
  - Myelosuppression [Unknown]
  - Infection [Unknown]
  - Marrow hyperplasia [Unknown]
